FAERS Safety Report 20616878 (Version 2)
Quarter: 2022Q2

REPORT INFORMATION
  Report Type: Spontaneous
  Country: JP (occurrence: JP)
  Receive Date: 20220321
  Receipt Date: 20220401
  Transmission Date: 20220720
  Serious: Yes (Other)
  Sender: FDA-Public Use
  Company Number: JP-ASTELLAS-2022JP003141

PATIENT
  Age: 33 Year
  Sex: Female

DRUGS (9)
  1. PROGRAF [Suspect]
     Active Substance: TACROLIMUS
     Indication: Lupus nephritis
     Route: 048
     Dates: start: 201506
  2. PROGRAF [Suspect]
     Active Substance: TACROLIMUS
     Indication: Systemic lupus erythematosus
  3. PREDONINE [Concomitant]
     Active Substance: PREDNISOLONE
     Indication: Lupus nephritis
     Route: 048
     Dates: start: 1999
  4. PREDONINE [Concomitant]
     Active Substance: PREDNISOLONE
     Indication: Systemic lupus erythematosus
     Dosage: 35 MG/DAY, UNKNOWN FREQ.
     Route: 065
  5. PREDONINE [Concomitant]
     Active Substance: PREDNISOLONE
     Dosage: 25 MG/DAY, UNKNOWN FREQ.
     Route: 065
  6. PLAQUENIL [Concomitant]
     Active Substance: HYDROXYCHLOROQUINE SULFATE
     Indication: Lupus nephritis
     Dosage: 200 MG OR 400 MG, EVERY OTHER DAY
     Route: 048
     Dates: start: 201702
  7. PLAQUENIL [Concomitant]
     Active Substance: HYDROXYCHLOROQUINE SULFATE
     Indication: Systemic lupus erythematosus
  8. METHYLDOPA [Concomitant]
     Active Substance: METHYLDOPA
     Indication: Product used for unknown indication
     Dosage: 750 MG/DAY, UNKNOWN FREQ.
     Route: 065
  9. AZATHIOPRINE [Concomitant]
     Active Substance: AZATHIOPRINE
     Indication: Product used for unknown indication
     Dosage: 50MG/DAY, UNKNOWN FREQ.
     Route: 065

REACTIONS (3)
  - Foetal growth restriction [Not Recovered/Not Resolved]
  - Maternal exposure during pregnancy [Unknown]
  - Prescribed underdose [Unknown]

NARRATIVE: CASE EVENT DATE: 20190710
